APPROVED DRUG PRODUCT: PIOGLITAZONE HYDROCHLORIDE
Active Ingredient: PIOGLITAZONE HYDROCHLORIDE
Strength: EQ 45MG BASE
Dosage Form/Route: TABLET;ORAL
Application: A204133 | Product #003 | TE Code: AB
Applicant: ANNORA PHARMA PRIVATE LTD
Approved: Apr 7, 2014 | RLD: No | RS: No | Type: RX